FAERS Safety Report 5959100-7 (Version None)
Quarter: 2008Q4

REPORT INFORMATION
  Report Type: 
  Country: None (occurrence: None)
  Receive Date: 20081120
  Receipt Date: 20071221
  Transmission Date: 20090506
  Serious: Yes (Hospitalization)
  Sender: FDA-Public Use
  Company Number: A0696070A

PATIENT
  Age: 14 Year
  Sex: Female

DRUGS (2)
  1. WELLBUTRIN SR [Suspect]
     Indication: ILL-DEFINED DISORDER
     Dosage: 3000MG SINGLE DOSE
     Route: 048
     Dates: start: 20071125, end: 20071125
  2. CELEXA [Concomitant]

REACTIONS (2)
  - HYPERREFLEXIA [None]
  - INTENTIONAL OVERDOSE [None]
